FAERS Safety Report 9792698 (Version 2)
Quarter: 2014Q2

REPORT INFORMATION
  Report Type: Spontaneous
  Country: US (occurrence: US)
  Receive Date: 20140102
  Receipt Date: 20140402
  Transmission Date: 20141212
  Serious: No
  Sender: FDA-Public Use
  Company Number: US-SA-2013SA104867

PATIENT
  Age: 62 Year
  Sex: Male
  Weight: 180 kg

DRUGS (5)
  1. AUBAGIO [Suspect]
     Indication: MULTIPLE SCLEROSIS
     Route: 048
     Dates: start: 20130701
  2. MULTIVITAMINS [Concomitant]
  3. PREDNISONE [Concomitant]
  4. BACLOFEN [Concomitant]
     Indication: MULTIPLE SCLEROSIS
     Dates: start: 20130102
  5. AMPYRA [Concomitant]
     Indication: MULTIPLE SCLEROSIS
     Dates: start: 20130102

REACTIONS (4)
  - Vomiting [Unknown]
  - Vertigo [Unknown]
  - Deafness [Unknown]
  - Nausea [Recovered/Resolved]
